FAERS Safety Report 7145886-5 (Version None)
Quarter: 2010Q4

REPORT INFORMATION
  Report Type: 
  Country: None (occurrence: None)
  Receive Date: 20101208
  Receipt Date: 20101201
  Transmission Date: 20110411
  Serious: Yes (Other)
  Sender: FDA-Public Use
  Company Number: D0069614A

PATIENT
  Sex: Male

DRUGS (8)
  1. REQUIP [Suspect]
     Indication: PARKINSON'S DISEASE
     Route: 048
     Dates: start: 20100101, end: 20100101
  2. TASMAR [Suspect]
     Indication: PARKINSON'S DISEASE
     Dosage: 100MG THREE TIMES PER DAY
     Route: 048
     Dates: start: 20100101, end: 20100101
  3. NEUPRO [Suspect]
     Indication: PARKINSON'S DISEASE
     Route: 062
     Dates: start: 20100101
  4. MADOPAR [Suspect]
     Indication: PARKINSON'S DISEASE
     Route: 048
  5. SIFROL [Concomitant]
     Indication: PARKINSON'S DISEASE
     Dosage: .35MG THREE TIMES PER DAY
     Route: 048
     Dates: start: 20100101, end: 20100101
  6. STALEVO 100 [Concomitant]
     Indication: PARKINSON'S DISEASE
     Route: 048
     Dates: end: 20100101
  7. AMANTADINE HCL [Concomitant]
     Indication: PARKINSON'S DISEASE
     Route: 048
     Dates: end: 20100101
  8. PIRIBEDIL [Concomitant]
     Indication: PARKINSON'S DISEASE
     Dosage: 50MG PER DAY
     Route: 048

REACTIONS (5)
  - DRUG INEFFECTIVE [None]
  - INSOMNIA [None]
  - SUICIDAL IDEATION [None]
  - TREMOR [None]
  - VERTIGO [None]
